FAERS Safety Report 16237220 (Version 1)
Quarter: 2019Q2

REPORT INFORMATION
  Report Type: Spontaneous
  Country: US (occurrence: US)
  Receive Date: 20190425
  Receipt Date: 20190425
  Transmission Date: 20190711
  Serious: Yes (Hospitalization)
  Sender: FDA-Public Use
  Company Number: US-TEVA-2019-US-1041423

PATIENT
  Age: 37 Year
  Sex: Male

DRUGS (1)
  1. VALPROIC ACID. [Suspect]
     Active Substance: VALPROIC ACID
     Indication: OVERDOSE
     Dosage: 50 TABLETS OF 500MG
     Route: 048

REACTIONS (5)
  - Pancreatic pseudocyst [Not Recovered/Not Resolved]
  - Toxicity to various agents [Recovered/Resolved]
  - Overdose [Recovering/Resolving]
  - Pancreatitis relapsing [Not Recovered/Not Resolved]
  - Mental status changes [Recovered/Resolved]
